FAERS Safety Report 8376132-2 (Version None)
Quarter: 2012Q2

REPORT INFORMATION
  Report Type: 
  Country: None (occurrence: None)
  Receive Date: 20120522
  Receipt Date: 20120518
  Transmission Date: 20120825
  Serious: Yes (Hospitalization, Other)
  Sender: FDA-Public Use
  Company Number: PHEH2012US010491

PATIENT
  Sex: Female
  Weight: 102.4 kg

DRUGS (1)
  1. GILENYA [Suspect]
     Indication: MULTIPLE SCLEROSIS
     Dosage: 0.5 MG, QD
     Route: 048
     Dates: start: 20110501

REACTIONS (7)
  - ROAD TRAFFIC ACCIDENT [None]
  - BREAST INJURY [None]
  - MUSCULAR WEAKNESS [None]
  - SPINAL FRACTURE [None]
  - VISUAL IMPAIRMENT [None]
  - FEELING ABNORMAL [None]
  - GAIT DISTURBANCE [None]
